FAERS Safety Report 7725974-2 (Version None)
Quarter: 2011Q3

REPORT INFORMATION
  Report Type: 
  Country: None (occurrence: None)
  Receive Date: 20110902
  Receipt Date: 20110829
  Transmission Date: 20111222
  Serious: Yes (Death, Hospitalization)
  Sender: FDA-Public Use
  Company Number: US-PFIZER INC-2011089005

PATIENT
  Sex: Male
  Weight: 73.016 kg

DRUGS (4)
  1. CELECOXIB [Suspect]
     Indication: OSTEOARTHRITIS
     Dosage: 100 MG, 2X/DAY
     Route: 048
     Dates: start: 20090623
  2. NEXIUM [Concomitant]
     Indication: GASTRITIS PROPHYLAXIS
     Dosage: 40 MG, 1X/DAY
     Route: 048
     Dates: start: 20090623
  3. BENICAR [Concomitant]
  4. CELECOXIB [Suspect]
     Indication: RHEUMATOID ARTHRITIS

REACTIONS (3)
  - RESPIRATORY FAILURE [None]
  - RENAL FAILURE [None]
  - ISCHAEMIC CARDIOMYOPATHY [None]
